FAERS Safety Report 25010183 (Version 1)
Quarter: 2025Q1

REPORT INFORMATION
  Report Type: Spontaneous
  Country: US (occurrence: None)
  Receive Date: 20250225
  Receipt Date: 20250225
  Transmission Date: 20250409
  Serious: Yes (Life-Threatening)
  Sender: FDA-CTU
  Company Number: None

PATIENT
  Age: 42 Year
  Sex: Female
  Weight: 107 kg

DRUGS (1)
  1. LAMOTRIGINE [Suspect]
     Active Substance: LAMOTRIGINE
     Indication: Seizure
     Dosage: FREQUENCY : 4 TIMES A DAY;?
     Route: 048
     Dates: start: 20250130, end: 20250220

REACTIONS (10)
  - Mucocutaneous rash [None]
  - Oral mucosal eruption [None]
  - Vulvovaginal rash [None]
  - Pyrexia [None]
  - Malaise [None]
  - Hypotension [None]
  - Shock [None]
  - Drug reaction with eosinophilia and systemic symptoms [None]
  - Stevens-Johnson syndrome [None]
  - Toxic epidermal necrolysis [None]

NARRATIVE: CASE EVENT DATE: 20250220
